FAERS Safety Report 5187196-1 (Version None)
Quarter: 2006Q4

REPORT INFORMATION
  Report Type: 
  Country: None (occurrence: None)
  Receive Date: 20061214
  Receipt Date: 20061128
  Transmission Date: 20070319
  Serious: Yes (Other)
  Sender: FDA-Public Use
  Company Number: 2006150476

PATIENT
  Age: 72 Year
  Sex: Female

DRUGS (5)
  1. ALDACTONE [Suspect]
     Dosage: 12.5 MG
  2. ATENOLOL [Suspect]
     Indication: HYPERTENSION
  3. LISINOPRIL [Suspect]
     Dosage: 10 MG
  4. FELODIPINE [Concomitant]
  5. BENDROFLUMETHIAZIDE [Concomitant]

REACTIONS (6)
  - BLOOD POTASSIUM INCREASED [None]
  - BLOOD PRESSURE INADEQUATELY CONTROLLED [None]
  - BRONCHOSPASM [None]
  - EPISTAXIS [None]
  - NASAL CONGESTION [None]
  - NAUSEA [None]
